FAERS Safety Report 8571898-0 (Version None)
Quarter: 2012Q3

REPORT INFORMATION
  Report Type: 
  Country: None (occurrence: None)
  Receive Date: 20120806
  Receipt Date: 20120726
  Transmission Date: 20120928
  Serious: Yes (Life-Threatening, Hospitalization, Other)
  Sender: FDA-Public Use
  Company Number: JP-NOVOPROD-356894

PATIENT
  Age: 42 Year
  Sex: Male
  Weight: 63 kg

DRUGS (8)
  1. LANTUS [Concomitant]
     Indication: TYPE 1 DIABETES MELLITUS
     Dosage: 26 U, QD
     Route: 058
  2. OLMESARTAN MEDOXOMIL [Concomitant]
     Dosage: 40 MG, QD
     Route: 048
     Dates: end: 20120207
  3. LIPITOR [Concomitant]
     Dosage: 10 MG, QD
     Route: 048
     Dates: end: 20120207
  4. SPIRONOLACTONE [Concomitant]
     Dosage: 25 MG, QD
     Route: 048
     Dates: end: 20120207
  5. NOVORAPID CHU FLEXPEN [Suspect]
     Indication: TYPE 1 DIABETES MELLITUS
     Dosage: UNK
     Route: 058
     Dates: end: 20120207
  6. TRICHLORMETHIAZIDE [Concomitant]
     Dosage: 1 MG, QD
     Route: 048
     Dates: end: 20120207
  7. RASILEZ [Concomitant]
     Dosage: 150 MG, QD
     Route: 048
     Dates: end: 20120207
  8. AMLODIPINE [Concomitant]
     Dosage: 7.5 MG, QD
     Route: 048
     Dates: end: 20120207

REACTIONS (3)
  - HYPOGLYCAEMIC ENCEPHALOPATHY [None]
  - OESOPHAGEAL RUPTURE [None]
  - QUADRIPLEGIA [None]
